FAERS Safety Report 24849138 (Version 1)
Quarter: 2025Q1

REPORT INFORMATION
  Report Type: Spontaneous
  Country: FR (occurrence: FR)
  Receive Date: 20250116
  Receipt Date: 20250116
  Transmission Date: 20250409
  Serious: Yes (Hospitalization, Other)
  Sender: ALEXION PHARMACEUTICALS
  Company Number: None

PATIENT
  Age: 2 Week
  Weight: 2.03 kg

DRUGS (1)
  1. NIRSEVIMAB [Suspect]
     Active Substance: NIRSEVIMAB
     Indication: Antiviral prophylaxis
     Route: 065

REACTIONS (3)
  - Neonatal hypoxia [Recovering/Resolving]
  - Dependence on oxygen therapy [Recovered/Resolved]
  - Abdominal distension [Recovered/Resolved]
